FAERS Safety Report 8518833-9 (Version None)
Quarter: 2012Q3

REPORT INFORMATION
  Report Type: 
  Country: None (occurrence: None)
  Receive Date: 20120718
  Receipt Date: 20120713
  Transmission Date: 20120928
  Serious: Yes (Other)
  Sender: FDA-Public Use
  Company Number: PHEH2012US013820

PATIENT
  Age: 33 Year
  Sex: Male
  Weight: 113.38 kg

DRUGS (1)
  1. GILENYA [Suspect]
     Indication: MULTIPLE SCLEROSIS
     Dosage: 0.5 MG, QD
     Route: 048

REACTIONS (2)
  - QRS AXIS ABNORMAL [None]
  - ELECTROCARDIOGRAM T WAVE INVERSION [None]
